FAERS Safety Report 12390206 (Version 4)
Quarter: 2016Q3

REPORT INFORMATION
  Report Type: Spontaneous
  Country: CL (occurrence: CL)
  Receive Date: 20160520
  Receipt Date: 20160711
  Transmission Date: 20161109
  Serious: Yes (Other)
  Sender: FDA-Public Use
  Company Number: CL-GILEAD-2016-0214766

PATIENT

DRUGS (5)
  1. LOPINAVIR [Concomitant]
     Active Substance: LOPINAVIR
     Indication: HIV INFECTION
     Dosage: UNK
  2. RITONAVIR. [Concomitant]
     Active Substance: RITONAVIR
     Indication: HIV INFECTION
     Dosage: UNK
  3. ATAZANAVIR [Concomitant]
     Active Substance: ATAZANAVIR
     Indication: HIV INFECTION
     Dosage: UNK
  4. TRUVADA [Suspect]
     Active Substance: EMTRICITABINE\TENOFOVIR DISOPROXIL FUMARATE
     Indication: HIV INFECTION
     Dosage: UNK, QD
     Route: 048
     Dates: start: 20160510, end: 20160510
  5. DIDANOSINA [Concomitant]
     Indication: HIV INFECTION
     Dosage: 400 MG, QD
     Route: 065
     Dates: start: 2007, end: 20160509

REACTIONS (3)
  - Dysaesthesia [Recovered/Resolved]
  - Neuropathy peripheral [Recovered/Resolved]
  - Drug interaction [Recovered/Resolved]
